FAERS Safety Report 7291286-7 (Version None)
Quarter: 2011Q1

REPORT INFORMATION
  Report Type: 
  Country: None (occurrence: None)
  Receive Date: 20110202
  Receipt Date: 20110118
  Transmission Date: 20110831
  Serious: Yes (Disabling)
  Sender: FDA-Public Use
  Company Number: AUR-APL-2010-02825

PATIENT
  Sex: Female

DRUGS (1)
  1. CITALOPRAM HYDROBROMIDE [Suspect]
     Dosage: 40MG - ORAL
     Route: 048

REACTIONS (4)
  - DYSTONIA [None]
  - CONVERSION DISORDER [None]
  - MUSCLE SPASMS [None]
  - POSTURING [None]
